FAERS Safety Report 25829760 (Version 1)
Quarter: 2025Q3

REPORT INFORMATION
  Report Type: Other
  Country: GB (occurrence: GB)
  Receive Date: 20250922
  Receipt Date: 20250922
  Transmission Date: 20251020
  Serious: Yes (Disabling, Other)
  Sender: STRIDES
  Company Number: None

PATIENT
  Age: 9 Year
  Sex: Male
  Weight: 32 kg

DRUGS (1)
  1. METHYLPHENIDATE [Suspect]
     Active Substance: METHYLPHENIDATE
     Indication: Attention deficit hyperactivity disorder
     Route: 065
     Dates: start: 20220202, end: 20250201

REACTIONS (1)
  - Lenticular opacities [Unknown]

NARRATIVE: CASE EVENT DATE: 20241101
